FAERS Safety Report 10004858 (Version 2)
Quarter: 2014Q2

REPORT INFORMATION
  Report Type: Spontaneous
  Country: GB (occurrence: GB)
  Receive Date: 20140312
  Receipt Date: 20140401
  Transmission Date: 20141212
  Serious: Yes (Other)
  Sender: FDA-Public Use
  Company Number: GB-PFIZER INC-2014067658

PATIENT
  Sex: 0

DRUGS (4)
  1. EXEMESTANE [Suspect]
     Indication: BREAST CANCER
     Dosage: UNK
  2. EVEROLIMUS [Suspect]
     Indication: BREAST CANCER
     Dosage: 5 MG, DAILY
     Route: 048
  3. EVEROLIMUS [Suspect]
     Dosage: 10 MG, DAILY
     Route: 048
  4. DENOSUMAB [Concomitant]
     Dosage: UNK

REACTIONS (16)
  - Pneumothorax [Unknown]
  - Pneumonitis [Unknown]
  - Pain [Unknown]
  - Pleural effusion [Unknown]
  - Glossodynia [Unknown]
  - Fatigue [Unknown]
  - Influenza like illness [Unknown]
  - Respiratory tract irritation [Unknown]
  - Arthralgia [Unknown]
  - Bone disorder [Unknown]
  - Onychoclasis [Unknown]
  - Chills [Unknown]
  - Rash [Unknown]
  - Body temperature increased [Unknown]
  - Chest discomfort [Unknown]
  - Wheezing [Unknown]
